FAERS Safety Report 22595539 (Version 1)
Quarter: 2023Q2

REPORT INFORMATION
  Report Type: Spontaneous
  Country: US (occurrence: US)
  Receive Date: 20230613
  Receipt Date: 20230613
  Transmission Date: 20230721
  Serious: Yes (Hospitalization)
  Sender: FDA-Public Use
  Company Number: US-UCBSA-2023029621

PATIENT
  Sex: Female
  Weight: 74.83 kg

DRUGS (1)
  1. CIMZIA [Suspect]
     Active Substance: CERTOLIZUMAB PEGOL
     Indication: Rheumatoid arthritis
     Dosage: 400 MILLILITER, UNK
     Route: 058
     Dates: start: 202209

REACTIONS (4)
  - Migraine [Unknown]
  - Headache [Unknown]
  - Product availability issue [Unknown]
  - Therapy interrupted [Unknown]
